FAERS Safety Report 6928385-2 (Version None)
Quarter: 2010Q3

REPORT INFORMATION
  Report Type: 
  Country: None (occurrence: None)
  Receive Date: 20100817
  Receipt Date: 20100809
  Transmission Date: 20110219
  Serious: Yes (Death, Hospitalization, Other)
  Sender: FDA-Public Use
  Company Number: US-CELGENEUS-163-21880-10051027

PATIENT
  Sex: Male

DRUGS (8)
  1. REVLIMID [Suspect]
     Indication: MULTIPLE MYELOMA
     Route: 048
     Dates: start: 20090429, end: 20091220
  2. DECADRON [Concomitant]
     Route: 048
     Dates: start: 20090429
  3. PLAVIX [Concomitant]
     Indication: CORONARY ARTERY DISEASE
     Route: 048
     Dates: start: 20090901
  4. PLAVIX [Concomitant]
     Indication: CARDIOMYOPATHY
  5. ASPIRIN [Concomitant]
     Indication: CARDIOMYOPATHY
     Route: 065
     Dates: start: 20090429
  6. ASPIRIN [Concomitant]
     Indication: CORONARY ARTERY DISEASE
  7. COREG [Concomitant]
     Indication: HYPERTENSION
     Route: 048
     Dates: start: 20090306
  8. OXYCODONE HCL AND ACETAMINOPHEN [Concomitant]
     Indication: BONE PAIN
     Dosage: 10/325MG
     Route: 065
     Dates: start: 20100125

REACTIONS (1)
  - ISCHAEMIC STROKE [None]
